FAERS Safety Report 15719353 (Version 1)
Quarter: 2018Q4

REPORT INFORMATION
  Report Type: Spontaneous
  Country: US (occurrence: US)
  Receive Date: 20181213
  Receipt Date: 20181213
  Transmission Date: 20190205
  Serious: Yes (Death, Other)
  Sender: FDA-Public Use
  Company Number: US-CHIESI USA, INC.-US-2018CHI000553

PATIENT

DRUGS (1)
  1. KENGREAL [Suspect]
     Active Substance: CANGRELOR
     Indication: PERCUTANEOUS CORONARY INTERVENTION
     Dosage: UNK
     Route: 065
     Dates: start: 201811, end: 201811

REACTIONS (3)
  - Coronary artery thrombosis [Recovered/Resolved]
  - Drug ineffective [Recovered/Resolved]
  - Death [Fatal]

NARRATIVE: CASE EVENT DATE: 201811
